FAERS Safety Report 7141734-8 (Version None)
Quarter: 2010Q4

REPORT INFORMATION
  Report Type: 
  Country: None (occurrence: None)
  Receive Date: 20101207
  Receipt Date: 20101125
  Transmission Date: 20110411
  Serious: Yes (Other)
  Sender: FDA-Public Use
  Company Number: JP-SANOFI-AVENTIS-2010SA072981

PATIENT
  Sex: Male

DRUGS (10)
  1. ELPLAT [Suspect]
     Indication: RECTAL CANCER
     Route: 041
     Dates: start: 20090629, end: 20090629
  2. ELPLAT [Suspect]
     Route: 041
     Dates: start: 20100119, end: 20100119
  3. ELPLAT [Suspect]
     Route: 041
     Dates: start: 20100413, end: 20100413
  4. ELPLAT [Suspect]
     Route: 041
     Dates: start: 20101028, end: 20101028
  5. XELODA [Suspect]
     Indication: RECTAL CANCER
     Route: 048
     Dates: start: 20100119, end: 20101028
  6. ZOMETA [Suspect]
     Indication: RECTAL CANCER
     Route: 041
     Dates: start: 20100914, end: 20101028
  7. AVASTIN [Suspect]
     Indication: RECTAL CANCER
     Route: 041
     Dates: start: 20100413, end: 20101028
  8. CALCIUM LEVOFOLINATE [Concomitant]
     Route: 041
     Dates: start: 20090629
  9. 5-FU [Concomitant]
     Route: 040
     Dates: start: 20100629
  10. 5-FU [Concomitant]
     Route: 041
     Dates: start: 20100629

REACTIONS (3)
  - DISSEMINATED INTRAVASCULAR COAGULATION [None]
  - HAEMOLYTIC ANAEMIA [None]
  - RENAL FAILURE ACUTE [None]
